FAERS Safety Report 5807247-8 (Version None)
Quarter: 2008Q3

REPORT INFORMATION
  Report Type: 
  Country: None (occurrence: None)
  Receive Date: 20080709
  Receipt Date: 20080709
  Transmission Date: 20090109
  Serious: No
  Sender: FDA-Public Use
  Company Number: None

PATIENT
  Age: 72 Year
  Sex: Female
  Weight: 104.3273 kg

DRUGS (1)
  1. LEVAQUIN [Suspect]
     Indication: CELLULITIS
     Dosage: 10 1 DAILY PO
     Route: 048
     Dates: start: 20080627, end: 20080707

REACTIONS (4)
  - JOINT SWELLING [None]
  - MOBILITY DECREASED [None]
  - TENDERNESS [None]
  - WALKING AID USER [None]
